FAERS Safety Report 13050453 (Version 1)
Quarter: 2016Q4

REPORT INFORMATION
  Report Type: Spontaneous
  Country: US (occurrence: US)
  Receive Date: 20161221
  Receipt Date: 20161221
  Transmission Date: 20170207
  Serious: Yes (Other)
  Sender: FDA-Public Use
  Company Number: US-GALDERMA-US16008667

PATIENT
  Age: 13 Year
  Sex: Female

DRUGS (1)
  1. CETAPHIL DAILY FACIAL CLEANSER [Suspect]
     Active Substance: COSMETICS
     Indication: LICE INFESTATION
     Route: 061
     Dates: start: 20161211, end: 20161212

REACTIONS (13)
  - Skin exfoliation [Recovering/Resolving]
  - Skin injury [Recovering/Resolving]
  - Activities of daily living impaired [Recovering/Resolving]
  - Incorrect route of drug administration [Recovering/Resolving]
  - Chemical injury [Recovering/Resolving]
  - Erythema [Recovering/Resolving]
  - Emotional distress [Recovering/Resolving]
  - Crying [Recovering/Resolving]
  - Pain of skin [Recovering/Resolving]
  - Sleep disorder [Recovering/Resolving]
  - Skin burning sensation [Recovering/Resolving]
  - Intentional product misuse [Recovering/Resolving]
  - Blister [Recovering/Resolving]

NARRATIVE: CASE EVENT DATE: 20161212
